FAERS Safety Report 4883297-3 (Version None)
Quarter: 2006Q1

REPORT INFORMATION
  Report Type: 
  Country: None (occurrence: None)
  Receive Date: 20060118
  Receipt Date: 20060106
  Transmission Date: 20060701
  Serious: Yes (Hospitalization)
  Sender: FDA-Public Use
  Company Number: CH-GILEAD-2006-0009074

PATIENT
  Age: 26 Year
  Sex: Male
  Weight: 70 kg

DRUGS (4)
  1. VIREAD [Suspect]
     Route: 048
     Dates: start: 20051125, end: 20051130
  2. PONSTAN [Suspect]
     Indication: PAIN
     Route: 048
     Dates: end: 20051130
  3. 3TC [Concomitant]
     Route: 048
     Dates: start: 20051125, end: 20051130
  4. KALETRA [Concomitant]
     Route: 048
     Dates: start: 20051125, end: 20051130

REACTIONS (3)
  - RENAL FAILURE ACUTE [None]
  - RENAL TUBULAR NECROSIS [None]
  - STAPHYLOCOCCAL SEPSIS [None]
